FAERS Safety Report 19829208 (Version 2)
Quarter: 2021Q3

REPORT INFORMATION
  Report Type: Spontaneous
  Country: ES (occurrence: ES)
  Receive Date: 20210914
  Receipt Date: 20210917
  Transmission Date: 20211014
  Serious: Yes (Other)
  Sender: FDA-Public Use
  Company Number: ES-SA-2021SA300625

PATIENT
  Age: 84 Year
  Sex: Female

DRUGS (3)
  1. LANTUS [Suspect]
     Active Substance: INSULIN GLARGINE
     Dosage: UNK (INCREASED DOSE)
     Route: 058
  2. LANTUS [Suspect]
     Active Substance: INSULIN GLARGINE
     Indication: TYPE 2 DIABETES MELLITUS
     Dosage: 14 IU, QD
     Route: 058
     Dates: start: 201412
  3. ORFIDAL [Concomitant]
     Active Substance: LORAZEPAM
     Dosage: UNK
     Route: 048

REACTIONS (18)
  - Blood glucose increased [Unknown]
  - Gait disturbance [Unknown]
  - Dizziness [Unknown]
  - Multiple use of single-use product [Unknown]
  - Incorrect dose administered [Unknown]
  - Withdrawal syndrome [Unknown]
  - Nervous system disorder [Unknown]
  - Drug intolerance [Unknown]
  - Headache [Unknown]
  - Hypoglycaemia [Unknown]
  - Confusional state [Unknown]
  - Vertigo [Unknown]
  - Emotional disorder [Unknown]
  - Decreased appetite [Unknown]
  - Drug ineffective [Unknown]
  - Cataract [Unknown]
  - Anxiety [Unknown]
  - Fear [Unknown]

NARRATIVE: CASE EVENT DATE: 202109
